FAERS Safety Report 5077282-9 (Version None)
Quarter: 2006Q3

REPORT INFORMATION
  Report Type: 
  Country: None (occurrence: None)
  Receive Date: 20060810
  Receipt Date: 20060117
  Transmission Date: 20061208
  Serious: No
  Sender: FDA-Public Use
  Company Number: US-GLAXOSMITHKLINE-A0589677A

PATIENT
  Age: 10 Year
  Sex: Female

DRUGS (2)
  1. PAXIL [Suspect]
     Dosage: 5MG PER DAY
     Route: 048
     Dates: start: 20041001, end: 20051001
  2. PAXIL [Suspect]
     Dosage: 5MG PER DAY
     Route: 048
     Dates: start: 20060101

REACTIONS (2)
  - DEPRESSION [None]
  - DYSGEUSIA [None]
